FAERS Safety Report 4746887-4 (Version None)
Quarter: 2005Q3

REPORT INFORMATION
  Report Type: 
  Country: None (occurrence: None)
  Receive Date: 20050815
  Receipt Date: 20050811
  Transmission Date: 20060218
  Serious: Yes (Other)
  Sender: FDA-Public Use
  Company Number: 2005US001077

PATIENT
  Age: 75 Year
  Sex: Female
  Weight: 70.3 kg

DRUGS (8)
  1. ADENOSCAN [Suspect]
     Indication: SCAN MYOCARDIAL PERFUSION
     Dosage: IV NOS
     Route: 042
     Dates: start: 20050804, end: 20050804
  2. COUMADIN [Concomitant]
  3. ACTONEL [Concomitant]
  4. PROTONIX [Concomitant]
  5. ZOCOR [Concomitant]
  6. ZETIA [Concomitant]
  7. DIOVAN [Concomitant]
  8. ASPIRIN [Concomitant]

REACTIONS (1)
  - CHILLS [None]
